FAERS Safety Report 5885312-7 (Version None)
Quarter: 2008Q3

REPORT INFORMATION
  Report Type: 
  Country: None (occurrence: None)
  Receive Date: 20080916
  Receipt Date: 20080904
  Transmission Date: 20090109
  Serious: Yes (Other)
  Sender: FDA-Public Use
  Company Number: US-PFIZER INC-2008075638

PATIENT
  Age: 24 Month
  Sex: Male
  Weight: 11.363 kg

DRUGS (1)
  1. LYRICA [Suspect]
     Dates: start: 20080904

REACTIONS (3)
  - ACCIDENTAL EXPOSURE [None]
  - BALANCE DISORDER [None]
  - DEPRESSED LEVEL OF CONSCIOUSNESS [None]
